FAERS Safety Report 16056198 (Version 1)
Quarter: 2019Q2

REPORT INFORMATION
  Report Type: Spontaneous
  Country: US (occurrence: US)
  Receive Date: 20190308
  Receipt Date: 20190308
  Transmission Date: 20190711
  Serious: Yes (Other)
  Sender: FDA-Public Use
  Company Number: None

PATIENT
  Age: 57 Year
  Sex: Female
  Weight: 87.3 kg

DRUGS (20)
  1. AFINITOR [Suspect]
     Active Substance: EVEROLIMUS
     Indication: BREAST CANCER FEMALE
     Route: 048
     Dates: start: 20181231, end: 20190227
  2. FLONASE [Concomitant]
     Active Substance: FLUTICASONE PROPIONATE
  3. TRAMADOL. [Concomitant]
     Active Substance: TRAMADOL
  4. VERZENIO [Concomitant]
     Active Substance: ABEMACICLIB
  5. VITAMIN D NOS [Concomitant]
     Active Substance: VITAMIN D NOS
  6. EXEMESTANE. [Concomitant]
     Active Substance: EXEMESTANE
  7. LORATIDINE [Concomitant]
     Active Substance: LORATADINE
  8. MELATONIN [Concomitant]
     Active Substance: MELATONIN
  9. IPRATROPIUM-ALBUTEROL [Concomitant]
     Active Substance: ALBUTEROL\IPRATROPIUM
  10. ALBUTEROL. [Concomitant]
     Active Substance: ALBUTEROL
  11. PROAIR HFA [Concomitant]
     Active Substance: ALBUTEROL SULFATE
  12. PROCHLORPERAZINE. [Concomitant]
     Active Substance: PROCHLORPERAZINE
  13. SYMBICORT [Concomitant]
     Active Substance: BUDESONIDE\FORMOTEROL FUMARATE DIHYDRATE
  14. ELIQUIS [Concomitant]
     Active Substance: APIXABAN
  15. ZOLPIDEM [Concomitant]
     Active Substance: ZOLPIDEM\ZOLPIDEM TARTRATE
  16. MONTELUKAST [Concomitant]
     Active Substance: MONTELUKAST SODIUM
  17. ONDANSETRONE [Concomitant]
     Active Substance: ONDANSETRON
  18. CALCIUM + D3 [Concomitant]
     Active Substance: CALCIUM\CHOLECALCIFEROL
  19. DOCUSATE SODIUM. [Concomitant]
     Active Substance: DOCUSATE SODIUM
  20. XGEVA [Concomitant]
     Active Substance: DENOSUMAB

REACTIONS (1)
  - Liver function test increased [None]

NARRATIVE: CASE EVENT DATE: 20190308
